FAERS Safety Report 8196727-9 (Version None)
Quarter: 2012Q1

REPORT INFORMATION
  Report Type: 
  Country: None (occurrence: None)
  Receive Date: 20120309
  Receipt Date: 20120305
  Transmission Date: 20120608
  Serious: Yes (Death)
  Sender: FDA-Public Use
  Company Number: PHFR2012GB001627

PATIENT
  Sex: Female

DRUGS (11)
  1. EXELON [Suspect]
     Indication: DEMENTIA WITH LEWY BODIES
     Dosage: 4.6 MG, UNK
  2. RAMIPRIL [Concomitant]
     Dosage: 5 MG, DAILY
     Route: 048
  3. EXELON [Suspect]
     Dosage: 9.5 MG, DAILY
     Route: 062
     Dates: start: 20110207, end: 20110712
  4. EXELON [Suspect]
  5. FOLIC ACID [Concomitant]
     Dosage: 5 MG, QD
     Route: 048
  6. ATENOLOL [Concomitant]
     Dosage: 50 MG, DAILY
     Route: 048
  7. DIGOXIN [Concomitant]
     Dosage: 12.5 MG, DAILY
     Route: 048
  8. WARFARIN SODIUM [Concomitant]
  9. FUROSEMIDE [Concomitant]
     Dosage: 60 MG, DAILY
     Route: 048
  10. ACETAMINOPHEN AND CODEINE PHOSPHATE [Concomitant]
     Route: 048
  11. BEZAFIBRATE [Concomitant]
     Dosage: 200 MG, TID
     Route: 048

REACTIONS (1)
  - DEATH [None]
